FAERS Safety Report 4502183-1 (Version None)
Quarter: 2004Q4

REPORT INFORMATION
  Report Type: 
  Country: None (occurrence: None)
  Receive Date: 20041116
  Receipt Date: 20041021
  Transmission Date: 20050328
  Serious: Yes (Hospitalization)
  Sender: FDA-Public Use
  Company Number: FR-ROCHE-384165

PATIENT
  Age: 16 Year
  Sex: Female
  Weight: 38 kg

DRUGS (8)
  1. ROVALCYTE [Suspect]
     Indication: TRANSPLANT
     Route: 048
     Dates: start: 20040501, end: 20040831
  2. ROVALCYTE [Suspect]
     Route: 048
     Dates: start: 20040901, end: 20041004
  3. IMUREL [Interacting]
     Indication: TRANSPLANT
     Route: 048
     Dates: start: 20040228, end: 20040901
  4. CYMEVAN [Suspect]
     Indication: CYTOMEGALOVIRUS INFECTION
     Route: 042
     Dates: start: 20040228
  5. BACTRIM [Suspect]
     Dosage: REPORTED AS 3 DAYS PER WEEK.
     Route: 048
     Dates: start: 20040530, end: 20041001
  6. CORTICOIDS NOS [Concomitant]
  7. TACROLIMUS [Concomitant]
     Indication: LUNG TRANSPLANT
     Route: 048
     Dates: start: 20040526
  8. CORTANCYL [Concomitant]
     Indication: LUNG TRANSPLANT
     Route: 048
     Dates: start: 20040228

REACTIONS (6)
  - ANAEMIA [None]
  - DRUG INTERACTION [None]
  - LEUKOPENIA [None]
  - LUNG DISORDER [None]
  - PYREXIA [None]
  - THROMBOCYTOPENIA [None]
